FAERS Safety Report 5507823-6 (Version None)
Quarter: 2007Q4

REPORT INFORMATION
  Report Type: 
  Country: None (occurrence: None)
  Receive Date: 20071030
  Receipt Date: 20070910
  Transmission Date: 20080405
  Serious: Yes (Other)
  Sender: FDA-Public Use
  Company Number: 267468

PATIENT
  Age: 43 Year
  Sex: Male
  Weight: 72.8 kg

DRUGS (7)
  1. LEVEMIR [Suspect]
     Indication: TYPE 1 DIABETES MELLITUS
     Dosage: VARIED DOSAGES IN INCREMENTS, QD AT NIGHT, SUBCUTANEOUS 10-13 LU, QD AT NIGHT, SUBCUTANEOUS
     Route: 058
     Dates: start: 20061102, end: 20070901
  2. LEVEMIR [Suspect]
     Indication: TYPE 1 DIABETES MELLITUS
     Dosage: VARIED DOSAGES IN INCREMENTS, QD AT NIGHT, SUBCUTANEOUS 10-13 LU, QD AT NIGHT, SUBCUTANEOUS
     Route: 058
     Dates: start: 20070901
  3. ACTOS [Suspect]
     Indication: TYPE 1 DIABETES MELLITUS
     Dosage: 1 TAB, QD, ORAL
     Route: 048
     Dates: start: 20061101, end: 20070301
  4. HUMULIN R [Concomitant]
  5. SIMVASTATIN [Concomitant]
  6. ASPIRIN [Concomitant]
  7. MULTIVITAMIN [Concomitant]

REACTIONS (1)
  - HYPOGLYCAEMIA [None]
